FAERS Safety Report 9440286 (Version 1)
Quarter: 2013Q3

REPORT INFORMATION
  Report Type: Spontaneous
  Country: UA (occurrence: UA)
  Receive Date: 20130805
  Receipt Date: 20130805
  Transmission Date: 20140515
  Serious: Yes (Death, Life-Threatening)
  Sender: FDA-Public Use
  Company Number: UA-ASTRAZENECA-2013SE60408

PATIENT
  Age: 67 Year
  Sex: Female

DRUGS (10)
  1. BRILINTA [Suspect]
     Indication: ACUTE CORONARY SYNDROME
     Route: 048
     Dates: start: 20130725, end: 20130725
  2. BRILINTA [Suspect]
     Indication: ACUTE CORONARY SYNDROME
     Dosage: 1 TABLET IN THE MORNING AND WAS PRESCRIBED TO TAKE 1 IN THE EVENING
     Route: 048
     Dates: start: 20130726, end: 20130726
  3. CLOPIDOGREL [Suspect]
     Dosage: LODING DOSE OF 4 TABLETS (0.075 G)
     Route: 048
     Dates: start: 20130724, end: 20130724
  4. CLOPIDOGREL [Suspect]
     Dosage: 1 TABLET
     Route: 048
     Dates: start: 20130725, end: 20130725
  5. ARIXTRA [Concomitant]
     Route: 058
     Dates: start: 20130724, end: 20130726
  6. ASPIRIN [Concomitant]
     Route: 048
     Dates: start: 20130724, end: 20130726
  7. GEENREDIN [Concomitant]
     Route: 042
     Dates: start: 20130724, end: 20130726
  8. CORVETIN [Concomitant]
     Route: 042
     Dates: start: 20130724, end: 20130726
  9. CRESTOR [Concomitant]
     Route: 048
     Dates: start: 20130724, end: 20130726
  10. CLEXANE [Concomitant]
     Route: 058
     Dates: start: 20130725, end: 20130726

REACTIONS (2)
  - Acute myocardial infarction [Fatal]
  - Gastrointestinal haemorrhage [Recovered/Resolved with Sequelae]
